FAERS Safety Report 10192799 (Version 1)
Quarter: 2014Q2

REPORT INFORMATION
  Report Type: Spontaneous
  Country: AU (occurrence: AU)
  Receive Date: 20140523
  Receipt Date: 20140523
  Transmission Date: 20141212
  Serious: Yes (Hospitalization)
  Sender: FDA-Public Use
  Company Number: PHHY2014AU059271

PATIENT
  Age: 59 Year
  Sex: Male

DRUGS (14)
  1. VORICONAZOLE [Suspect]
     Indication: NOSOCOMIAL INFECTION
     Dosage: 200 MG, BID
     Route: 042
  2. CYCLOPHOSPHAMIDE [Concomitant]
     Indication: NATURAL KILLER-CELL LYMPHOBLASTIC LYMPHOMA
  3. DOXORUBICIN [Concomitant]
     Indication: NATURAL KILLER-CELL LYMPHOBLASTIC LYMPHOMA
  4. ETOPOSIDE [Concomitant]
     Indication: NATURAL KILLER-CELL LYMPHOBLASTIC LYMPHOMA
  5. VINCRISTINE [Concomitant]
     Indication: NATURAL KILLER-CELL LYMPHOBLASTIC LYMPHOMA
  6. METHYLPREDNISOLONE [Concomitant]
     Indication: NATURAL KILLER-CELL LYMPHOBLASTIC LYMPHOMA
  7. PIPERACILLIN/TAZOBACTAM [Concomitant]
     Indication: NOSOCOMIAL INFECTION
     Dosage: 4.5 G, BID
     Route: 042
  8. VANCOMYCIN [Concomitant]
     Dosage: 1 G DAILY
     Route: 042
  9. TRIMETHOPRIM SULFAMETHOXAZOLE [Concomitant]
     Dosage: 1 DF, THREE TIMES PER WEEK
     Route: 048
  10. FRUSEMIDE [Concomitant]
     Dosage: 60 MG, QID
     Route: 042
  11. PREDNISOLONE [Concomitant]
     Dosage: 7.5 MG DAILY
     Route: 048
  12. PANTOPRAZOLE [Concomitant]
     Dosage: 40 MG DAILY
     Route: 042
  13. FILGRASTIM [Concomitant]
     Dosage: 300 MG DAILY
     Route: 058
  14. TRANEXAMIC ACID [Concomitant]
     Dosage: 500 MG DAILY
     Route: 048

REACTIONS (5)
  - Unresponsive to stimuli [Recovered/Resolved]
  - Cardiac arrest [Recovered/Resolved]
  - Ventricular fibrillation [Recovered/Resolved]
  - Torsade de pointes [Recovered/Resolved]
  - Electrocardiogram QT prolonged [Recovered/Resolved]
